FAERS Safety Report 25719042 (Version 2)
Quarter: 2025Q3

REPORT INFORMATION
  Report Type: Report from Study
  Country: PR (occurrence: PR)
  Receive Date: 20250823
  Receipt Date: 20250825
  Transmission Date: 20251021
  Serious: Yes (Hospitalization, Other)
  Sender: ABBVIE
  Company Number: PR-ABBVIE-6424188

PATIENT
  Age: 29 Year
  Sex: Female

DRUGS (1)
  1. RINVOQ [Suspect]
     Active Substance: UPADACITINIB
     Indication: Crohn^s disease
     Route: 048
     Dates: start: 202504, end: 202505

REACTIONS (5)
  - Pain [Recovered/Resolved]
  - Intestinal fistula [Recovered/Resolved]
  - Stenosis [Unknown]
  - Abscess [Recovered/Resolved]
  - Drug ineffective [Recovered/Resolved]

NARRATIVE: CASE EVENT DATE: 20250101
